FAERS Safety Report 5092588-5 (Version None)
Quarter: 2006Q3

REPORT INFORMATION
  Report Type: 
  Country: None (occurrence: None)
  Receive Date: 20060828
  Receipt Date: 20060828
  Transmission Date: 20061208
  Serious: Yes (Other)
  Sender: FDA-Public Use
  Company Number: None

PATIENT
  Age: 34 Year
  Sex: Male
  Weight: 79.3795 kg

DRUGS (2)
  1. SOTALOL HCL [Suspect]
     Indication: BRUGADA SYNDROME
     Dosage: 80 MG BID PO
     Route: 048
  2. SOTALOL HCL [Suspect]
     Indication: VENTRICULAR TACHYCARDIA
     Dosage: 80 MG BID PO
     Route: 048

REACTIONS (4)
  - DIZZINESS [None]
  - HEART RATE INCREASED [None]
  - PERIPHERAL COLDNESS [None]
  - PHARMACEUTICAL PRODUCT COMPLAINT [None]
